FAERS Safety Report 13450100 (Version 1)
Quarter: 2017Q2

REPORT INFORMATION
  Report Type: Spontaneous
  Country: US (occurrence: US)
  Receive Date: 20170417
  Receipt Date: 20170417
  Transmission Date: 20170830
  Serious: No
  Sender: FDA-Public Use
  Company Number: US-BION-20160664

PATIENT
  Age: 79 Year
  Sex: Female
  Weight: 49.9 kg

DRUGS (1)
  1. ALEVE [Suspect]
     Active Substance: NAPROXEN SODIUM
     Indication: ANALGESIC THERAPY
     Dosage: 2 IN THE MORNING AND 2 AT NIGHT AS NEEDED
     Route: 048
     Dates: end: 20161031

REACTIONS (3)
  - Oral discomfort [Not Recovered/Not Resolved]
  - Incorrect dose administered [Unknown]
  - Product leakage [Unknown]
